FAERS Safety Report 8416991-8 (Version None)
Quarter: 2012Q2

REPORT INFORMATION
  Report Type: 
  Country: None (occurrence: None)
  Receive Date: 20120606
  Receipt Date: 20120530
  Transmission Date: 20120825
  Serious: Yes (Hospitalization)
  Sender: FDA-Public Use
  Company Number: BR-B.I. PHARMACEUTICALS,INC./RIDGEFIELD-2012-BR-00484BR

PATIENT
  Age: 80 Year
  Sex: Male

DRUGS (3)
  1. TRAYENTA [Suspect]
     Indication: TYPE 2 DIABETES MELLITUS
     Dosage: 5 MG
     Route: 048
     Dates: start: 20120301, end: 20120401
  2. CHEMOTHERAPY [Concomitant]
     Indication: RENAL CANCER
  3. CHEMOTHERAPY [Concomitant]
     Indication: OESOPHAGEAL CARCINOMA

REACTIONS (2)
  - HYPOGLYCAEMIA [None]
  - RENAL CANCER [None]
